FAERS Safety Report 23712713 (Version 1)
Quarter: 2024Q2

REPORT INFORMATION
  Report Type: Report from Study
  Country: US (occurrence: US)
  Receive Date: 20240405
  Receipt Date: 20240405
  Transmission Date: 20240716
  Serious: Yes (Other)
  Sender: FDA-Public Use
  Company Number: US-UCBSA-2024015951

PATIENT
  Age: 86 Year
  Sex: Male

DRUGS (1)
  1. ROTIGOTINE [Suspect]
     Active Substance: ROTIGOTINE
     Indication: Parkinson^s disease
     Dosage: 8 MILLIGRAM, ONCE DAILY (QD)
     Route: 062

REACTIONS (7)
  - Limb operation [Not Recovered/Not Resolved]
  - Leg amputation [Not Recovered/Not Resolved]
  - Skin graft [Not Recovered/Not Resolved]
  - Osteomyelitis [Recovered/Resolved]
  - Angiopathy [Not Recovered/Not Resolved]
  - Application site erythema [Not Recovered/Not Resolved]
  - Red blood cell count decreased [Not Recovered/Not Resolved]

NARRATIVE: CASE EVENT DATE: 20240301
